FAERS Safety Report 25883133 (Version 1)
Quarter: 2025Q4

REPORT INFORMATION
  Report Type: Spontaneous
  Country: CN (occurrence: CN)
  Receive Date: 20251006
  Receipt Date: 20251006
  Transmission Date: 20260117
  Serious: Yes (Other)
  Sender: UNICHEM
  Company Number: CN-UNICHEM LABORATORIES LIMITED-UNI-2025-CN-003418

PATIENT

DRUGS (3)
  1. QUETIAPINE FUMARATE [Suspect]
     Active Substance: QUETIAPINE FUMARATE
     Indication: Bipolar disorder
     Dosage: 200 MILLIGRAM, HS
     Route: 065
  2. MEGESTROL ACETATE [Suspect]
     Active Substance: MEGESTROL ACETATE
     Indication: Endometrial hyperplasia with cellular atypia
     Dosage: 160 MILLIGRAM, BID
     Route: 065
  3. MEGESTROL ACETATE [Suspect]
     Active Substance: MEGESTROL ACETATE
     Dosage: 80 MILLIGRAM, BID
     Route: 065

REACTIONS (1)
  - Adrenal insufficiency [Recovering/Resolving]
